FAERS Safety Report 21280589 (Version 2)
Quarter: 2022Q3

REPORT INFORMATION
  Report Type: Spontaneous
  Country: GR (occurrence: GR)
  Receive Date: 20220901
  Receipt Date: 20220912
  Transmission Date: 20221026
  Serious: Yes (Other)
  Sender: FDA-Public Use
  Company Number: GR-PFIZER INC-PV202200051717

PATIENT
  Age: 39 Year
  Sex: Female
  Weight: 96 kg

DRUGS (6)
  1. PAXLOVID [Suspect]
     Active Substance: NIRMATRELVIR\RITONAVIR
     Indication: COVID-19 treatment
     Dosage: UNK
     Route: 048
     Dates: start: 20220618, end: 20220623
  2. PULMOTON [Concomitant]
     Indication: COVID-19
     Dosage: UNK
     Dates: start: 20220616, end: 20220626
  3. MOSTRELAN [Concomitant]
     Indication: COVID-19
     Dosage: UNK
     Dates: start: 20220616, end: 20220626
  4. MESALAMINE [Concomitant]
     Active Substance: MESALAMINE
     Indication: Colitis ulcerative
     Dosage: 500 MG, 2X3
     Dates: start: 2005
  5. ASPIRIN [Concomitant]
     Active Substance: ASPIRIN
     Indication: Antiphospholipid syndrome
     Dosage: 80 MG, 3X/WEEK
     Dates: start: 2018
  6. LEVOTHYROXINE [Concomitant]
     Active Substance: LEVOTHYROXINE
     Indication: Hypothyroidism
     Dosage: 50 UG, 1X/DAY
     Dates: start: 2019

REACTIONS (1)
  - Lactic acidosis [Unknown]

NARRATIVE: CASE EVENT DATE: 20220620
